FAERS Safety Report 4308877-5 (Version None)
Quarter: 2004Q1

REPORT INFORMATION
  Report Type: 
  Country: None (occurrence: None)
  Receive Date: 20040227
  Receipt Date: 20040218
  Transmission Date: 20041129
  Serious: Yes (Hospitalization)
  Sender: FDA-Public Use
  Company Number: 2004001329

PATIENT
  Age: 5 Year
  Sex: Female
  Weight: 21 kg

DRUGS (8)
  1. ZITHROMAX [Suspect]
     Indication: ASTHMA
     Dosage: 200 MG (ONCE), ORAL
     Route: 048
     Dates: start: 20031226, end: 20031226
  2. CEFTRIAXONE [Suspect]
     Indication: VOMITING
     Dosage: 1 GRAM (ONCE), INTRAVENOUS
     Route: 042
     Dates: start: 20031226, end: 20031226
  3. METOCLOPRAMIDE [Suspect]
     Indication: VOMITING
     Dosage: 0.6 ML (ONCE), INTRAVITREOUS
     Dates: start: 20031226, end: 20031226
  4. THEOPHYLLINE [Concomitant]
  5. CLEMASTINE FUMARATE [Concomitant]
  6. TIPEPIDINE HIBENZATE (TIPEPIDINE HIBENZATE) [Concomitant]
  7. ACETYLCYSTEINE [Concomitant]
  8. PROCATEROL HYROCHLORIDE IPROCATEROL HYDROCHLORIDE) [Concomitant]

REACTIONS (6)
  - ANAPHYLACTIC SHOCK [None]
  - ANURIA [None]
  - ASTHMA [None]
  - CONDITION AGGRAVATED [None]
  - DRUG INEFFECTIVE [None]
  - VOMITING [None]
